FAERS Safety Report 7011029-1 (Version None)
Quarter: 2010Q3

REPORT INFORMATION
  Report Type: 
  Country: None (occurrence: None)
  Receive Date: 20100923
  Receipt Date: 20081022
  Transmission Date: 20110219
  Serious: No
  Sender: FDA-Public Use
  Company Number: US-WYE-H06535908

PATIENT

DRUGS (1)
  1. EFFEXOR XR [Suspect]
     Dosage: 150 MG, FREQUENCY NOT SPECIFIED

REACTIONS (1)
  - COELIAC DISEASE [None]
